FAERS Safety Report 5286841-X (Version None)
Quarter: 2007Q2

REPORT INFORMATION
  Report Type: 
  Country: None (occurrence: None)
  Receive Date: 20070404
  Receipt Date: 20070402
  Transmission Date: 20071010
  Serious: Yes (Death)
  Sender: FDA-Public Use
  Company Number: US-BOEHRINGER INGELHEIM PHARMACEUTICALS, INC.-2007-BP-03460BP

PATIENT
  Age: 81 Year
  Sex: Female

DRUGS (12)
  1. SPIRIVA [Suspect]
     Indication: CHRONIC OBSTRUCTIVE PULMONARY DISEASE
     Route: 055
     Dates: start: 20061218, end: 20070101
  2. SPIRIVA [Suspect]
     Indication: DYSPNOEA
  3. ASPIRIN [Concomitant]
     Indication: CARDIAC DISORDER
  4. ADVAIR DISKUS 100/50 [Concomitant]
     Indication: CHRONIC OBSTRUCTIVE PULMONARY DISEASE
  5. LEVOTHYROXINE SODIUM [Concomitant]
     Indication: THYROID DISORDER
  6. ERISTA [Concomitant]
  7. LASIX [Concomitant]
  8. MELATONIN [Concomitant]
  9. SYNTHROID [Concomitant]
  10. ALDACTONE [Concomitant]
  11. LISINOPRIL [Concomitant]
  12. PROTONIX [Concomitant]

REACTIONS (3)
  - DEATH [None]
  - DYSPNOEA [None]
  - LETHARGY [None]
